FAERS Safety Report 10968706 (Version 5)
Quarter: 2016Q3

REPORT INFORMATION
  Report Type: Report from Study
  Country: CA (occurrence: CA)
  Receive Date: 20150330
  Receipt Date: 20160919
  Transmission Date: 20161109
  Serious: Yes (Hospitalization, Other)
  Sender: FDA-Public Use
  Company Number: CA-ROCHE-1471588

PATIENT
  Age: 27 Year
  Sex: Male

DRUGS (13)
  1. IBUPROFEN. [Concomitant]
     Active Substance: IBUPROFEN
  2. ATORVASTATIN [Concomitant]
     Active Substance: ATORVASTATIN
  3. ACTEMRA [Suspect]
     Active Substance: TOCILIZUMAB
     Indication: RHEUMATOID ARTHRITIS
     Route: 058
     Dates: start: 20140926
  4. ACTEMRA [Suspect]
     Active Substance: TOCILIZUMAB
     Dosage: FREQUENCY: EVERY OTHER WEEK, TEMPORARILY DISCONTINUED, LAST DOSE WAS TAKEN ON 17/OCT/2014
     Route: 058
     Dates: end: 20141017
  5. ACTEMRA [Suspect]
     Active Substance: TOCILIZUMAB
     Dosage: STOPPED IN MID OF DEC/2014
     Route: 058
     Dates: end: 201412
  6. LEFLUNOMIDE. [Concomitant]
     Active Substance: LEFLUNOMIDE
  7. PANTOPRAZOLE [Concomitant]
     Active Substance: PANTOPRAZOLE SODIUM
  8. ARAVA [Concomitant]
     Active Substance: LEFLUNOMIDE
  9. OMNARIS [Concomitant]
     Active Substance: CICLESONIDE
  10. CITALOPRAM [Concomitant]
     Active Substance: CITALOPRAM HYDROBROMIDE
  11. NAPROXEN. [Concomitant]
     Active Substance: NAPROXEN
  12. MORPHINE [Concomitant]
     Active Substance: MORPHINE
  13. XELJANZ [Concomitant]
     Active Substance: TOFACITINIB CITRATE

REACTIONS (13)
  - Sinusitis [Recovered/Resolved]
  - Chest pain [Recovering/Resolving]
  - Pain in jaw [Not Recovered/Not Resolved]
  - Vomiting [Unknown]
  - Joint swelling [Unknown]
  - Frustration tolerance decreased [Unknown]
  - Nausea [Unknown]
  - Injection site cyst [Unknown]
  - Infection [Unknown]
  - Hyperlipidaemia [Unknown]
  - Headache [Recovered/Resolved]
  - Hepatic enzyme abnormal [Unknown]
  - Dyspnoea [Recovering/Resolving]

NARRATIVE: CASE EVENT DATE: 201410
